FAERS Safety Report 9399994 (Version 3)
Quarter: 2014Q1

REPORT INFORMATION
  Report Type: Report from Study
  Country: IT (occurrence: IT)
  Receive Date: 20130715
  Receipt Date: 20140113
  Transmission Date: 20141002
  Serious: Yes (Hospitalization)
  Sender: FDA-Public Use
  Company Number: IT-ROCHE-1237516

PATIENT
  Age: 57 Year
  Sex: Female
  Weight: 54.5 kg

DRUGS (6)
  1. RIBAVIRIN [Suspect]
     Indication: HEPATITIS C
     Route: 048
     Dates: start: 20130415, end: 20130606
  2. BI 207127 [Suspect]
     Indication: HEPATITIS C
     Route: 048
     Dates: start: 20130415, end: 20130606
  3. BI 201335 [Suspect]
     Indication: HEPATITIS C
     Route: 048
     Dates: start: 20130415, end: 20130606
  4. EUTIROX [Concomitant]
     Indication: HYPOTHYROIDISM
     Route: 065
     Dates: end: 1990
  5. TRIATEC (ITALY) [Concomitant]
     Indication: HYPERTENSION
     Route: 065
     Dates: start: 1990
  6. TRIATEC HCT [Concomitant]
     Indication: HYPERTENSION
     Route: 065
     Dates: start: 1990

REACTIONS (1)
  - Drug hypersensitivity [Recovered/Resolved]
